FAERS Safety Report 9130281 (Version 5)
Quarter: 2013Q2

REPORT INFORMATION
  Report Type: Report from Study
  Country: GB (occurrence: GB)
  Receive Date: 20130228
  Receipt Date: 20130503
  Transmission Date: 20140414
  Serious: Yes (Hospitalization)
  Sender: FDA-Public Use
  Company Number: GB-PFIZER INC-2013062244

PATIENT
  Age: 72 Year
  Sex: Male
  Weight: 171 kg

DRUGS (15)
  1. TEMSIROLIMUS [Suspect]
     Indication: MANTLE CELL LYMPHOMA
     Dosage: 175 MG, WEEKLY
     Route: 042
     Dates: start: 20130110, end: 20130117
  2. PIRITON [Concomitant]
     Indication: PREMEDICATION
     Dosage: 10 MG, UNK
     Route: 042
  3. ALLOPURINOL [Concomitant]
     Indication: PREMEDICATION
     Dosage: 300 MG, DAILY
     Route: 048
  4. ONDANSETRON [Concomitant]
     Indication: PREMEDICATION
     Dosage: 8 MG, 2X/DAY
     Route: 048
  5. LOPERAMIDE [Concomitant]
     Indication: PREMEDICATION
     Dosage: 1 DF, AS NEEDED
  6. GENTAMICIN [Concomitant]
     Indication: CYSTITIS
     Dosage: 320 MG, DAILY
     Route: 042
  7. CIPROFLOXACIN [Concomitant]
     Indication: CYSTITIS
     Dosage: 500 MG, 2X/DAY
     Route: 048
  8. CLARITHROMYCIN [Concomitant]
     Indication: CYSTITIS
     Dosage: 500 MG, 2X/DAY
     Route: 048
  9. NORMAL SALINE [Concomitant]
     Indication: FLUID REPLACEMENT
     Dosage: UNK
     Route: 042
  10. ACETYLSALICYLIC ACID [Concomitant]
     Dosage: 75 MG, DAILY
     Route: 048
  11. CETIRIZINE [Concomitant]
     Dosage: 10 MG, DAILY
     Route: 048
  12. FUROSEMIDE [Concomitant]
     Dosage: UNK, DAILY
     Route: 048
  13. OMEPRAZOLE [Concomitant]
     Dosage: 20 MG, DAILY
     Route: 048
  14. PERINDOPRIL [Concomitant]
     Dosage: 2 MG, DAILY
     Route: 048
  15. PRAVASTATIN [Concomitant]
     Dosage: 40 MG, DAILY
     Route: 048

REACTIONS (2)
  - Cystitis [Not Recovered/Not Resolved]
  - Thrombocytopenia [Recovered/Resolved]
